FAERS Safety Report 6424521-5 (Version None)
Quarter: 2009Q4

REPORT INFORMATION
  Report Type: 
  Country: None (occurrence: None)
  Receive Date: 20091103
  Receipt Date: 20091026
  Transmission Date: 20100525
  Serious: Yes (Other)
  Sender: FDA-Public Use
  Company Number: ES-ROCHE-664716

PATIENT

DRUGS (1)
  1. XELODA [Suspect]
     Indication: COLON CANCER
     Route: 065

REACTIONS (1)
  - METASTASES TO LIVER [None]
